FAERS Safety Report 22587222 (Version 6)
Quarter: 2023Q4

REPORT INFORMATION
  Report Type: Spontaneous
  Country: JP (occurrence: JP)
  Receive Date: 20230612
  Receipt Date: 20231228
  Transmission Date: 20240109
  Serious: Yes (Hospitalization, Other)
  Sender: FDA-Public Use
  Company Number: JP-UNITED THERAPEUTICS-UNT-2023-014703

PATIENT
  Age: 5 Year
  Sex: Female
  Weight: 14 kg

DRUGS (54)
  1. UNITUXIN [Suspect]
     Active Substance: DINUTUXIMAB
     Indication: Neuroblastoma recurrent
     Dosage: 5.25 MG/M2 (INFUSION RATE 0.875 MG/M2/H), CYCLICAL (CYCLE 1)
     Route: 041
     Dates: start: 20230516, end: 20230516
  2. UNITUXIN [Suspect]
     Active Substance: DINUTUXIMAB
     Dosage: UNK (INFUSION RATE INCREASED TO 1.75 MG/M2/H), CYCLICAL (CYCLE 1)
     Route: 041
     Dates: start: 20230516, end: 20230516
  3. UNITUXIN [Suspect]
     Active Substance: DINUTUXIMAB
     Dosage: 12.51 MG/M2 (INFUSION RATE 0.875 MG/M2/H), CYCLICAL (CYCLE 1)
     Route: 041
     Dates: start: 20230517, end: 20230517
  4. UNITUXIN [Suspect]
     Active Substance: DINUTUXIMAB
     Dosage: UNK (INFUSION RATE REDUCED TO 0.435 MG/M2/H), CYCLICAL (CYCLE 1
     Route: 041
     Dates: start: 20230517, end: 20230518
  5. UNITUXIN [Suspect]
     Active Substance: DINUTUXIMAB
     Dosage: 17.5 MG/M2 (INFUSION RATE OF 0.875 MG/M2/H), CYCLICAL (CYCLE 1)
     Route: 041
     Dates: start: 20230518, end: 20230518
  6. UNITUXIN [Suspect]
     Active Substance: DINUTUXIMAB
     Dosage: 17.5 MG/M2 (INFUSION RATE OF 0.875 MG/M2/H), CYCLICAL (CYCLE 1)
     Route: 041
     Dates: start: 20230523, end: 20230523
  7. UNITUXIN [Suspect]
     Active Substance: DINUTUXIMAB
     Dosage: 17.5 MG/M2, CYCLICAL (CYCLE 2)
     Route: 041
     Dates: start: 20230620, end: 20230623
  8. UNITUXIN [Suspect]
     Active Substance: DINUTUXIMAB
     Dosage: 17.5 MG/M2, CYCLICAL (CYCLE 3)
     Route: 041
     Dates: start: 20230711, end: 20230714
  9. UNITUXIN [Suspect]
     Active Substance: DINUTUXIMAB
     Dosage: 17.5 MG/M2, CYCLICAL (CYCLE 4)
     Route: 041
     Dates: start: 20230815, end: 20230818
  10. UNITUXIN [Suspect]
     Active Substance: DINUTUXIMAB
     Dosage: 17.5 MG/M2, CYCLICAL (CYCLE 5)
     Route: 041
     Dates: start: 20230905, end: 20230908
  11. UNITUXIN [Suspect]
     Active Substance: DINUTUXIMAB
     Dosage: 17.5 MG/M2, CYCLICAL (CYCLE 6)
     Route: 041
     Dates: start: 20231023, end: 20231026
  12. FILGRASTIM [Suspect]
     Active Substance: FILGRASTIM
     Indication: Neuroblastoma recurrent
     Dosage: 5 ?G/KG, (IN CYCLE 1)
     Route: 065
     Dates: start: 20230506, end: 20230508
  13. FILGRASTIM [Suspect]
     Active Substance: FILGRASTIM
     Dosage: 5 ?G/KG
     Route: 065
     Dates: start: 20230513, end: 20230515
  14. FILGRASTIM [Suspect]
     Active Substance: FILGRASTIM
     Dosage: 2 ?G/KG, QD
     Route: 065
     Dates: start: 20230518, end: 20230526
  15. FILGRASTIM [Suspect]
     Active Substance: FILGRASTIM
     Dosage: 2 ?G/KG, (CYCLE 3)
     Route: 065
     Dates: start: 20230708, end: 20230721
  16. FILGRASTIM [Suspect]
     Active Substance: FILGRASTIM
     Dosage: 2 ?G/KG, (CYCLE 5)
     Route: 065
     Dates: start: 20230902, end: 20230915
  17. SOLU-MEDROL [Concomitant]
     Active Substance: METHYLPREDNISOLONE SODIUM SUCCINATE
     Indication: Prophylaxis
     Dosage: 1 MG, QD
     Route: 065
     Dates: start: 20230518, end: 20230518
  18. SOLU-MEDROL [Concomitant]
     Active Substance: METHYLPREDNISOLONE SODIUM SUCCINATE
     Dosage: 1 MG, QD
     Route: 065
     Dates: start: 20230523, end: 20230523
  19. SOLU-MEDROL [Concomitant]
     Active Substance: METHYLPREDNISOLONE SODIUM SUCCINATE
     Dosage: 1 MG, QD
     Route: 065
     Dates: start: 20230620, end: 20230623
  20. SOLU-MEDROL [Concomitant]
     Active Substance: METHYLPREDNISOLONE SODIUM SUCCINATE
     Dosage: 1 MG, QD
     Route: 065
     Dates: start: 20230711, end: 20230714
  21. SOLU-MEDROL [Concomitant]
     Active Substance: METHYLPREDNISOLONE SODIUM SUCCINATE
     Dosage: 1 MG, QD
     Route: 065
     Dates: start: 20230815, end: 20230818
  22. SOLU-MEDROL [Concomitant]
     Active Substance: METHYLPREDNISOLONE SODIUM SUCCINATE
     Dosage: UNK
     Route: 065
     Dates: start: 20230905, end: 20230908
  23. SOLU-MEDROL [Concomitant]
     Active Substance: METHYLPREDNISOLONE SODIUM SUCCINATE
     Dosage: UNK
     Route: 065
     Dates: start: 20231023, end: 20231026
  24. TECELEUKIN [Concomitant]
     Active Substance: TECELEUKIN
     Indication: Neuroblastoma recurrent
     Dosage: 188,000 UNITS/M2
     Route: 065
     Dates: start: 20230613, end: 20230619
  25. TECELEUKIN [Concomitant]
     Active Substance: TECELEUKIN
     Dosage: 250,000 UNITS/M2
     Route: 065
     Dates: start: 20230620, end: 20230626
  26. TECELEUKIN [Concomitant]
     Active Substance: TECELEUKIN
     Dosage: 375,000 UNITS/M2 [CYCLE 4]
     Route: 065
     Dates: start: 20230808, end: 20230811
  27. TECELEUKIN [Concomitant]
     Active Substance: TECELEUKIN
     Dosage: 500,000 UNITS/M2
     Route: 065
     Dates: start: 20230815, end: 20230818
  28. TECELEUKIN [Concomitant]
     Active Substance: TECELEUKIN
     Dosage: 560,000 UNITS/M2 [CYCLE 6]
     Route: 065
     Dates: start: 20231016, end: 20231019
  29. TECELEUKIN [Concomitant]
     Active Substance: TECELEUKIN
     Dosage: 750,000 UNITS/M2
     Route: 065
     Dates: start: 20231023, end: 20231026
  30. ACETAMINOPHEN [Concomitant]
     Active Substance: ACETAMINOPHEN
     Indication: Prophylaxis
     Dosage: UNK
     Route: 065
     Dates: start: 20230516, end: 20230519
  31. ACETAMINOPHEN [Concomitant]
     Active Substance: ACETAMINOPHEN
     Dosage: UNK
     Route: 065
     Dates: start: 20230523, end: 20230524
  32. ACETAMINOPHEN [Concomitant]
     Active Substance: ACETAMINOPHEN
     Dosage: UNK
     Route: 065
     Dates: start: 20230613, end: 20230613
  33. ACETAMINOPHEN [Concomitant]
     Active Substance: ACETAMINOPHEN
     Dosage: UNK
     Route: 065
     Dates: start: 20230620, end: 20230624
  34. ACETAMINOPHEN [Concomitant]
     Active Substance: ACETAMINOPHEN
     Dosage: UNK
     Route: 065
     Dates: start: 20230711, end: 20230715
  35. ACETAMINOPHEN [Concomitant]
     Active Substance: ACETAMINOPHEN
     Dosage: UNK
     Route: 065
     Dates: start: 20230808, end: 20230808
  36. ACETAMINOPHEN [Concomitant]
     Active Substance: ACETAMINOPHEN
     Dosage: UNK
     Route: 065
     Dates: start: 20230815, end: 20230819
  37. ACETAMINOPHEN [Concomitant]
     Active Substance: ACETAMINOPHEN
     Dosage: UNK
     Route: 065
     Dates: start: 20230905, end: 20230909
  38. ACETAMINOPHEN [Concomitant]
     Active Substance: ACETAMINOPHEN
     Dosage: UNK
     Route: 065
     Dates: start: 20231023, end: 20231027
  39. HYDROXYZINE HYDROCHLORIDE [Concomitant]
     Active Substance: HYDROXYZINE HYDROCHLORIDE
     Indication: Prophylaxis
     Dosage: UNK
     Route: 065
     Dates: start: 20230516, end: 20230519
  40. HYDROXYZINE HYDROCHLORIDE [Concomitant]
     Active Substance: HYDROXYZINE HYDROCHLORIDE
     Dosage: UNK
     Route: 065
     Dates: start: 20230523, end: 20230524
  41. HYDROXYZINE HYDROCHLORIDE [Concomitant]
     Active Substance: HYDROXYZINE HYDROCHLORIDE
     Dosage: UNK
     Route: 065
     Dates: start: 20230613, end: 20230613
  42. HYDROXYZINE HYDROCHLORIDE [Concomitant]
     Active Substance: HYDROXYZINE HYDROCHLORIDE
     Dosage: UNK
     Route: 065
     Dates: start: 20230620, end: 20230624
  43. HYDROXYZINE HYDROCHLORIDE [Concomitant]
     Active Substance: HYDROXYZINE HYDROCHLORIDE
     Dosage: UNK
     Route: 065
     Dates: start: 20230711, end: 20230715
  44. HYDROXYZINE HYDROCHLORIDE [Concomitant]
     Active Substance: HYDROXYZINE HYDROCHLORIDE
     Dosage: UNK
     Route: 065
     Dates: start: 20230808, end: 20230808
  45. HYDROXYZINE HYDROCHLORIDE [Concomitant]
     Active Substance: HYDROXYZINE HYDROCHLORIDE
     Dosage: UNK
     Route: 065
     Dates: start: 20230815, end: 20230819
  46. HYDROXYZINE HYDROCHLORIDE [Concomitant]
     Active Substance: HYDROXYZINE HYDROCHLORIDE
     Dosage: UNK
     Route: 065
     Dates: start: 20230905, end: 20230909
  47. HYDROXYZINE HYDROCHLORIDE [Concomitant]
     Active Substance: HYDROXYZINE HYDROCHLORIDE
     Dosage: UNK
     Route: 065
     Dates: start: 20231023, end: 20231027
  48. MORPHINE [Concomitant]
     Active Substance: MORPHINE
     Indication: Prophylaxis
     Dosage: UNK
     Route: 065
     Dates: start: 20230516, end: 20230519
  49. MORPHINE [Concomitant]
     Active Substance: MORPHINE
     Dosage: UNK
     Route: 065
     Dates: start: 20230523, end: 20230524
  50. MORPHINE [Concomitant]
     Active Substance: MORPHINE
     Dosage: UNK
     Route: 065
     Dates: start: 20230620, end: 20230624
  51. MORPHINE [Concomitant]
     Active Substance: MORPHINE
     Dosage: UNK
     Route: 065
     Dates: start: 20230711, end: 20230715
  52. MORPHINE [Concomitant]
     Active Substance: MORPHINE
     Dosage: UNK
     Route: 065
     Dates: start: 20230815, end: 20230819
  53. MORPHINE [Concomitant]
     Active Substance: MORPHINE
     Dosage: UNK
     Route: 065
     Dates: start: 20230905, end: 20230909
  54. MORPHINE [Concomitant]
     Active Substance: MORPHINE
     Dosage: UNK
     Route: 065
     Dates: start: 20231023, end: 20231027

REACTIONS (16)
  - Aspartate aminotransferase increased [Recovered/Resolved]
  - Alanine aminotransferase increased [Recovered/Resolved]
  - Tachycardia [Recovered/Resolved]
  - Oxygen saturation decreased [Recovered/Resolved]
  - Hypoxia [Recovered/Resolved]
  - Laryngitis [Recovered/Resolved]
  - Aspartate aminotransferase increased [Recovered/Resolved]
  - Aspartate aminotransferase increased [Recovering/Resolving]
  - Aspartate aminotransferase increased [Recovered/Resolved]
  - Alanine aminotransferase increased [Recovered/Resolved]
  - White blood cell count increased [Recovered/Resolved]
  - Abdominal pain [Recovered/Resolved]
  - Pyrexia [Recovered/Resolved]
  - Aspartate aminotransferase increased [Recovered/Resolved]
  - Alanine aminotransferase increased [Recovered/Resolved]
  - Urticaria [Recovered/Resolved]

NARRATIVE: CASE EVENT DATE: 20230515
